FAERS Safety Report 8973630 (Version 1)
Quarter: 2012Q4

REPORT INFORMATION
  Report Type: 
  Country: US (occurrence: US)
  Receive Date: 20121218
  Receipt Date: 20121218
  Transmission Date: 20130627
  Serious: No
  Sender: FDA-Public Use
  Company Number: US-BRISTOL-MYERS SQUIBB COMPANY-16426801

PATIENT
  Age: 25 Year
  Sex: Male
  Weight: 88.43 kg

DRUGS (3)
  1. ABILIFY [Suspect]
  2. ZOLOFT [Concomitant]
  3. TENORMIN [Concomitant]

REACTIONS (2)
  - Headache [Not Recovered/Not Resolved]
  - Palpitations [Unknown]
